FAERS Safety Report 8891116 (Version 1)
Quarter: 2012Q4

REPORT INFORMATION
  Report Type: 
  Country: SE (occurrence: SE)
  Receive Date: 20121107
  Receipt Date: 20121107
  Transmission Date: 20130627
  Serious: Yes (Hospitalization)
  Sender: FDA-Public Use
  Company Number: SE-PFIZER INC-2012271284

PATIENT
  Age: 47 Year
  Sex: Male
  Weight: 120.9 kg

DRUGS (5)
  1. GENOTROPIN [Suspect]
     Dosage: 0.2 mg, 1x/day,7 injections/week
     Route: 058
     Dates: start: 20060609
  2. METFORMIN [Concomitant]
     Indication: DIABETES MELLITUS
     Dosage: UNK
     Dates: start: 20060405
  3. NEBIDO [Concomitant]
     Indication: LUTEINIZING HORMONE DEFICIENCY
     Dosage: UNK
     Dates: start: 20060522
  4. NEBIDO [Concomitant]
     Indication: FOLLICLE-STIMULATING HORMONE DEFICIENCY
  5. NEBIDO [Concomitant]
     Indication: TESTICULAR HYPOGONADISM

REACTIONS (1)
  - Arthropathy [Unknown]
